FAERS Safety Report 7231565-2 (Version None)
Quarter: 2011Q1

REPORT INFORMATION
  Report Type: 
  Country: None (occurrence: None)
  Receive Date: 20110107
  Receipt Date: 20101230
  Transmission Date: 20110831
  Serious: Yes (Hospitalization)
  Sender: FDA-Public Use
  Company Number: 2011SP000038

PATIENT
  Age: 56 Year
  Sex: Female
  Weight: 78 kg

DRUGS (4)
  1. ORGARAN [Suspect]
     Indication: THROMBOCYTOPENIA
     Dosage: SC
     Route: 058
     Dates: start: 20101208, end: 20101213
  2. ACETAMINOPHEN AND TRAMADOL HCL [Concomitant]
  3. ASPIRIN [Concomitant]
  4. INNOHEP [Suspect]
     Indication: PERIPHERAL ISCHAEMIA
     Dosage: 0.6 ML; QD; SC
     Route: 058
     Dates: start: 20101118, end: 20101207

REACTIONS (7)
  - DRUG HYPERSENSITIVITY [None]
  - ANTIPHOSPHOLIPID SYNDROME [None]
  - AORTIC THROMBOSIS [None]
  - SKIN ULCER [None]
  - SKIN NECROSIS [None]
  - HEPARIN-INDUCED THROMBOCYTOPENIA [None]
  - SYSTEMIC LUPUS ERYTHEMATOSUS [None]
